FAERS Safety Report 15192790 (Version 5)
Quarter: 2021Q4

REPORT INFORMATION
  Report Type: Spontaneous
  Country: US (occurrence: None)
  Receive Date: 20180725
  Receipt Date: 20211126
  Transmission Date: 20220304
  Serious: Yes (Hospitalization, Other)
  Sender: FDA-Public Use
  Company Number: US-ROCHE-2155325

PATIENT
  Age: 45 Year
  Sex: Female
  Weight: 59.020 kg

DRUGS (3)
  1. ALECENSA [Suspect]
     Active Substance: ALECTINIB HYDROCHLORIDE
     Indication: Lung cancer metastatic
     Dosage: START DATE: 02/JUL/2017?ONGOING: YES
     Route: 048
     Dates: start: 20170702
  2. ALECENSA [Suspect]
     Active Substance: ALECTINIB HYDROCHLORIDE
     Dosage: START DATE17/AUG/2018
     Route: 048
     Dates: start: 20180817
  3. ALECENSA [Suspect]
     Active Substance: ALECTINIB HYDROCHLORIDE
     Dosage: ONGOING
     Route: 048
     Dates: start: 20180705

REACTIONS (26)
  - Bradycardia [Not Recovered/Not Resolved]
  - Fungal infection [Not Recovered/Not Resolved]
  - Urinary tract infection [Not Recovered/Not Resolved]
  - COVID-19 [Unknown]
  - Alopecia [Recovered/Resolved]
  - Constipation [Not Recovered/Not Resolved]
  - Joint swelling [Not Recovered/Not Resolved]
  - Swelling of eyelid [Not Recovered/Not Resolved]
  - Hypertrichosis [Not Recovered/Not Resolved]
  - Hypertrichosis [Not Recovered/Not Resolved]
  - Thermal burn [Not Recovered/Not Resolved]
  - Arthralgia [Not Recovered/Not Resolved]
  - Increased tendency to bruise [Not Recovered/Not Resolved]
  - Nasopharyngitis [Not Recovered/Not Resolved]
  - Palpitations [Not Recovered/Not Resolved]
  - Anxiety [Not Recovered/Not Resolved]
  - Fatigue [Not Recovered/Not Resolved]
  - Nail disorder [Not Recovered/Not Resolved]
  - Thermal burn [Recovered/Resolved]
  - Illness [Unknown]
  - Hypotension [Not Recovered/Not Resolved]
  - Drug interaction [Unknown]
  - Insomnia [Not Recovered/Not Resolved]
  - Amnesia [Unknown]
  - Cellulite [Unknown]
  - Skin atrophy [Unknown]

NARRATIVE: CASE EVENT DATE: 20170901
